FAERS Safety Report 22070874 (Version 1)
Quarter: 2023Q1

REPORT INFORMATION
  Report Type: Spontaneous
  Country: US (occurrence: None)
  Receive Date: 20230306
  Receipt Date: 20230306
  Transmission Date: 20230417
  Serious: Yes (Hospitalization)
  Sender: FDA-Public Use
  Company Number: None

PATIENT
  Age: 78 Year
  Sex: Male
  Weight: 97.25 kg

DRUGS (4)
  1. VOTRIENT [Suspect]
     Active Substance: PAZOPANIB HYDROCHLORIDE
     Indication: Renal cancer
     Dosage: FREQUENCY : DAILY;?
     Route: 048
  2. EYE MULTIVITAMIN AND MINERALS [Concomitant]
  3. METOPROLOL SUCCINATE ER [Concomitant]
  4. SUCRALFATE [Concomitant]

REACTIONS (2)
  - Pneumonia [None]
  - Therapy interrupted [None]
